FAERS Safety Report 15428273 (Version 2)
Quarter: 2021Q3

REPORT INFORMATION
  Report Type: Report from Study
  Country: DE (occurrence: DE)
  Receive Date: 20180926
  Receipt Date: 20210820
  Transmission Date: 20211014
  Serious: Yes (Death, Life-Threatening, Hospitalization, Other)
  Sender: FDA-Public Use
  Company Number: DE-AUROBINDO-AUR-APL-2018-035920

PATIENT

DRUGS (6)
  1. QUETIAPINE FILM?COATED TABLET [Suspect]
     Active Substance: QUETIAPINE
     Indication: INTENTIONAL OVERDOSE
     Dosage: 9 GRAM
     Route: 065
  2. ZOPICLONE [Suspect]
     Active Substance: ZOPICLONE
     Indication: PRODUCT USED FOR UNKNOWN INDICATION
     Dosage: UNK
     Route: 065
  3. QUETIAPINE FILM?COATED TABLET [Suspect]
     Active Substance: QUETIAPINE
     Dosage: 3 GRAM
     Route: 048
  4. MIRTAZAPINE. [Suspect]
     Active Substance: MIRTAZAPINE
     Indication: INTENTIONAL OVERDOSE
     Dosage: NI
     Route: 048
  5. ALCOHOL. [Suspect]
     Active Substance: ALCOHOL
     Indication: PRODUCT USED FOR UNKNOWN INDICATION
     Dosage: 1.98 GRAM PER LITRE
     Route: 048
  6. CITALOPRAM [Suspect]
     Active Substance: CITALOPRAM HYDROBROMIDE
     Indication: INTENTIONAL OVERDOSE
     Dosage: 2.8 GRAM
     Route: 048

REACTIONS (15)
  - Somnolence [Unknown]
  - Arrhythmia [Fatal]
  - Coma [Unknown]
  - Suicide attempt [Unknown]
  - Overdose [Fatal]
  - Intentional overdose [Unknown]
  - Pulseless electrical activity [Fatal]
  - Heart rate increased [Unknown]
  - Delirium [Unknown]
  - Drug level increased [Unknown]
  - Ventricular tachycardia [Fatal]
  - Pneumonia [Unknown]
  - Cardiac arrest [Fatal]
  - Drug interaction [Unknown]
  - Seizure [Not Recovered/Not Resolved]
